FAERS Safety Report 6357576-7 (Version None)
Quarter: 2009Q3

REPORT INFORMATION
  Report Type: 
  Country: None (occurrence: None)
  Receive Date: 20090916
  Receipt Date: 20090907
  Transmission Date: 20100115
  Serious: Yes (Other)
  Sender: FDA-Public Use
  Company Number: PHHY2009MX38234

PATIENT
  Sex: Female

DRUGS (2)
  1. DIOVAN [Suspect]
     Indication: HYPERTENSION
     Dosage: 1 TABLET (160MG) PER DAY
     Route: 048
     Dates: start: 20060901
  2. DILTIAZEM [Concomitant]
     Indication: HYPERTENSION

REACTIONS (1)
  - THROMBOPHLEBITIS SUPERFICIAL [None]
